FAERS Safety Report 18246795 (Version 3)
Quarter: 2021Q1

REPORT INFORMATION
  Report Type: Report from Study
  Country: US (occurrence: US)
  Receive Date: 20200909
  Receipt Date: 20210122
  Transmission Date: 20210419
  Serious: Yes (Death, Life-Threatening, Hospitalization)
  Sender: FDA-Public Use
  Company Number: US-ROCHE-2670596

PATIENT
  Age: 45 Year
  Sex: Male
  Weight: 135.4 kg

DRUGS (2)
  1. BEVACIZUMAB. [Suspect]
     Active Substance: BEVACIZUMAB
     Indication: MALIGNANT GLIOMA
     Route: 042
     Dates: start: 20200721
  2. ATEZOLIZUMAB. [Suspect]
     Active Substance: ATEZOLIZUMAB
     Indication: MALIGNANT GLIOMA
     Route: 042
     Dates: start: 20200717, end: 20200806

REACTIONS (4)
  - Large intestine perforation [Not Recovered/Not Resolved]
  - Sepsis [Fatal]
  - Somnolence [Recovered/Resolved]
  - Pyramidal tract syndrome [Recovered/Resolved]

NARRATIVE: CASE EVENT DATE: 20200719
